FAERS Safety Report 7963545-3 (Version None)
Quarter: 2011Q4

REPORT INFORMATION
  Report Type: 
  Country: None (occurrence: None)
  Receive Date: 20111122
  Receipt Date: 20110725
  Transmission Date: 20120403
  Serious: No
  Sender: FDA-Public Use
  Company Number: PHHY2011US68101

PATIENT
  Age: 33 Year
  Sex: Female

DRUGS (6)
  1. CITALOPRAM HYDROBROMIDE [Concomitant]
  2. ZOLPIDEM [Concomitant]
  3. CYCLOBENZAPRINE [Concomitant]
  4. GILENYA [Suspect]
     Indication: MULTIPLE SCLEROSIS
     Dosage: 0.5 MG, QD, ORAL
     Route: 048
     Dates: start: 20110501
  5. ALPRAZOLAM [Concomitant]
  6. HYDROCODONE W/APAP (HYDROCODONE, PARACETAMOL) [Concomitant]

REACTIONS (3)
  - ASTHENIA [None]
  - VISUAL IMPAIRMENT [None]
  - MEMORY IMPAIRMENT [None]
